FAERS Safety Report 16889865 (Version 1)
Quarter: 2019Q4

REPORT INFORMATION
  Report Type: Spontaneous
  Country: US (occurrence: US)
  Receive Date: 20191004
  Receipt Date: 20191004
  Transmission Date: 20200122
  Serious: No
  Sender: FDA-Public Use
  Company Number: None

PATIENT

DRUGS (1)
  1. LORAZEPAM 0.5MG TABLETS [Suspect]
     Active Substance: LORAZEPAM

REACTIONS (1)
  - Death [None]
